FAERS Safety Report 8278135-5 (Version None)
Quarter: 2012Q2

REPORT INFORMATION
  Report Type: 
  Country: None (occurrence: None)
  Receive Date: 20120412
  Receipt Date: 20110926
  Transmission Date: 20120825
  Serious: No
  Sender: FDA-Public Use
  Company Number: US-ASTRAZENECA-2011SE58119

PATIENT
  Age: 46 Year
  Sex: Female

DRUGS (3)
  1. SELMA [Concomitant]
  2. NEXIUM [Suspect]
     Route: 048
  3. HYDROCODONE BITARTRATE [Suspect]

REACTIONS (4)
  - DRUG DOSE OMISSION [None]
  - DIZZINESS [None]
  - PAIN [None]
  - NAUSEA [None]
